FAERS Safety Report 9320421 (Version 1)
Quarter: 2013Q2

REPORT INFORMATION
  Report Type: Spontaneous
  Country: JP (occurrence: JP)
  Receive Date: 20130530
  Receipt Date: 20130530
  Transmission Date: 20140414
  Serious: Yes (Hospitalization)
  Sender: FDA-Public Use
  Company Number: JP-B.I. PHARMACEUTICALS,INC./RIDGEFIELD-2013-BI-14672NB

PATIENT
  Age: 92 Year
  Sex: Male

DRUGS (6)
  1. PRADAXA [Suspect]
     Dosage: 220 MG
     Route: 048
     Dates: start: 201112
  2. FLUITRAN [Concomitant]
     Dosage: NR
     Route: 065
  3. CALBLOCK [Concomitant]
     Dosage: NR
     Route: 065
  4. SUNRYTHM [Concomitant]
     Dosage: NR
     Route: 065
  5. LIMARMONE [Concomitant]
     Dosage: NR
     Route: 065
  6. ZOLPIDEM TARTRATE OD [Concomitant]
     Dosage: NR
     Route: 065

REACTIONS (1)
  - Femur fracture [Unknown]
